FAERS Safety Report 21577939 (Version 2)
Quarter: 2023Q1

REPORT INFORMATION
  Report Type: Spontaneous
  Country: US (occurrence: US)
  Receive Date: 20221110
  Receipt Date: 20230113
  Transmission Date: 20230417
  Serious: No
  Sender: FDA-Public Use
  Company Number: US-PFIZER INC-2020074962

PATIENT
  Age: 79 Year
  Sex: Male
  Weight: 113.4 kg

DRUGS (3)
  1. XELJANZ XR [Suspect]
     Active Substance: TOFACITINIB CITRATE
     Indication: Rheumatoid arthritis
     Dosage: 11 MG, 1X/DAY
     Dates: start: 2017
  2. METHOTREXATE [Concomitant]
     Active Substance: METHOTREXATE
     Dosage: UNK
  3. SODIUM [Concomitant]
     Active Substance: SODIUM
     Dosage: 6 TABLETS WEEKLY

REACTIONS (2)
  - Hypoacusis [Not Recovered/Not Resolved]
  - Visual impairment [Unknown]
